FAERS Safety Report 21244912 (Version 21)
Quarter: 2024Q4

REPORT INFORMATION
  Report Type: Spontaneous
  Country: CA (occurrence: CA)
  Receive Date: 20220823
  Receipt Date: 20241212
  Transmission Date: 20250115
  Serious: Yes (Other)
  Sender: ORGANON
  Company Number: CA-ORGANON-O2206CAN002029

PATIENT
  Age: 76 Year
  Sex: Female

DRUGS (585)
  1. SINGULAIR [Suspect]
     Active Substance: MONTELUKAST SODIUM
     Indication: Product used for unknown indication
     Dosage: UNK
     Route: 048
  2. SINGULAIR [Suspect]
     Active Substance: MONTELUKAST SODIUM
     Dosage: UNK
     Route: 048
  3. SINGULAIR [Suspect]
     Active Substance: MONTELUKAST SODIUM
     Dosage: UNK
     Route: 065
  4. SINGULAIR [Suspect]
     Active Substance: MONTELUKAST SODIUM
     Dosage: UNK
     Route: 065
  5. SINGULAIR [Suspect]
     Active Substance: MONTELUKAST SODIUM
     Dosage: UNK; DOSAGE FORM: NOT SPECIFIED
     Route: 048
  6. SINGULAIR [Suspect]
     Active Substance: MONTELUKAST SODIUM
     Dosage: UNK; DOSAGE FORM: NOT SPECIFIED
     Route: 065
  7. SINGULAIR [Suspect]
     Active Substance: MONTELUKAST SODIUM
     Dosage: UNK
     Route: 065
  8. SINGULAIR [Suspect]
     Active Substance: MONTELUKAST SODIUM
     Dosage: UNK
     Route: 065
  9. SINGULAIR [Suspect]
     Active Substance: MONTELUKAST SODIUM
     Dosage: UNK
     Route: 065
  10. SINGULAIR [Suspect]
     Active Substance: MONTELUKAST SODIUM
     Dosage: UNK
     Route: 065
  11. SINGULAIR [Suspect]
     Active Substance: MONTELUKAST SODIUM
     Dosage: UNK
     Route: 065
  12. SINGULAIR [Suspect]
     Active Substance: MONTELUKAST SODIUM
     Dosage: UNK
     Route: 065
  13. SINGULAIR [Suspect]
     Active Substance: MONTELUKAST SODIUM
     Dosage: UNK; DOSAGE FORM: NOT SPECIFIED
     Route: 065
  14. SINGULAIR [Suspect]
     Active Substance: MONTELUKAST SODIUM
     Dosage: UNK; DOSAGE FORM: NOT SPECIFIED
     Route: 065
  15. SINGULAIR [Suspect]
     Active Substance: MONTELUKAST SODIUM
     Dosage: UNK
     Route: 048
  16. SINGULAIR [Suspect]
     Active Substance: MONTELUKAST SODIUM
     Dosage: UNK
     Route: 048
  17. SINGULAIR [Suspect]
     Active Substance: MONTELUKAST SODIUM
     Dosage: UNK
     Route: 065
  18. SINGULAIR [Suspect]
     Active Substance: MONTELUKAST SODIUM
     Dosage: UNK
     Route: 065
  19. SINGULAIR [Suspect]
     Active Substance: MONTELUKAST SODIUM
     Dosage: UNK
     Route: 065
  20. SINGULAIR [Suspect]
     Active Substance: MONTELUKAST SODIUM
     Dosage: UNK
     Route: 065
  21. SINGULAIR [Suspect]
     Active Substance: MONTELUKAST SODIUM
     Dosage: UNK
     Route: 065
  22. SINGULAIR [Suspect]
     Active Substance: MONTELUKAST SODIUM
     Dosage: UNK
     Route: 048
  23. SINGULAIR [Suspect]
     Active Substance: MONTELUKAST SODIUM
     Dosage: UNK
     Route: 048
  24. SINGULAIR [Suspect]
     Active Substance: MONTELUKAST SODIUM
     Dosage: UNK
     Route: 048
  25. SINGULAIR [Suspect]
     Active Substance: MONTELUKAST SODIUM
     Dosage: UNK
     Route: 048
  26. SINGULAIR [Suspect]
     Active Substance: MONTELUKAST SODIUM
     Dosage: UNK
     Route: 048
  27. SINGULAIR [Suspect]
     Active Substance: MONTELUKAST SODIUM
     Dosage: UNK
     Route: 048
  28. SINGULAIR [Suspect]
     Active Substance: MONTELUKAST SODIUM
     Dosage: UNK
     Route: 048
  29. SINGULAIR [Suspect]
     Active Substance: MONTELUKAST SODIUM
     Dosage: UNK
     Route: 048
  30. SINGULAIR [Suspect]
     Active Substance: MONTELUKAST SODIUM
     Dosage: UNK
     Route: 048
  31. SINGULAIR [Suspect]
     Active Substance: MONTELUKAST SODIUM
     Dosage: UNK
     Route: 065
  32. SINGULAIR [Suspect]
     Active Substance: MONTELUKAST SODIUM
     Dosage: UNK
     Route: 065
  33. SINGULAIR [Suspect]
     Active Substance: MONTELUKAST SODIUM
     Dosage: UNK
     Route: 065
  34. SINGULAIR [Suspect]
     Active Substance: MONTELUKAST SODIUM
     Dosage: UNK
     Route: 065
  35. SINGULAIR [Suspect]
     Active Substance: MONTELUKAST SODIUM
     Dosage: UNK
     Route: 065
  36. SINGULAIR [Suspect]
     Active Substance: MONTELUKAST SODIUM
     Indication: Product used for unknown indication
     Dosage: UNK; DOSAGE FORM: NOT SPECIFIED
     Route: 048
  37. SINGULAIR [Suspect]
     Active Substance: MONTELUKAST SODIUM
     Dosage: DOSAGE FORM: NOT SPECIFIED
     Route: 048
  38. SINGULAIR [Suspect]
     Active Substance: MONTELUKAST SODIUM
     Dosage: UNK; DOSAGE FORM: TABLET
     Route: 048
  39. SINGULAIR [Suspect]
     Active Substance: MONTELUKAST SODIUM
     Dosage: UNK
     Route: 048
  40. SINGULAIR [Suspect]
     Active Substance: MONTELUKAST SODIUM
     Dosage: UNK
     Route: 065
  41. SINGULAIR [Suspect]
     Active Substance: MONTELUKAST SODIUM
     Dosage: DOSAGE FORM: NOT SPECIFIED
     Route: 048
  42. SINGULAIR [Suspect]
     Active Substance: MONTELUKAST SODIUM
     Dosage: DOSAGE FORM: TABLET
     Route: 048
  43. SINGULAIR [Suspect]
     Active Substance: MONTELUKAST SODIUM
     Dosage: DOSAGE FORM: TABLET
     Route: 048
  44. SINGULAIR [Suspect]
     Active Substance: MONTELUKAST SODIUM
     Dosage: UNK
     Route: 065
  45. SINGULAIR [Suspect]
     Active Substance: MONTELUKAST SODIUM
     Dosage: UNK
     Route: 065
  46. NASONEX [Suspect]
     Active Substance: MOMETASONE FUROATE
     Indication: Product used for unknown indication
     Dosage: UNK, DOSAGE FORM NOT SPECIFIED (ALSO REPORTED AS INHALATION POWDER)
     Route: 065
  47. NASONEX [Suspect]
     Active Substance: MOMETASONE FUROATE
     Dosage: UNK, DOSAGE FORM NOT SPECIFIED  (ALSO REPORTED AS INHALATION POWDER)
     Route: 065
  48. NASONEX [Suspect]
     Active Substance: MOMETASONE FUROATE
     Dosage: UNK, DOSAGE FORM: NOT SPECIFIED (ALSO REPORTED AS INHALATION POWDER)
     Route: 065
  49. NASONEX [Suspect]
     Active Substance: MOMETASONE FUROATE
     Dosage: UNK, DOSAGE FORM: NOT SPECIFIED (ALSO REPORTED AS INHALATION POWDER)
     Route: 065
  50. NASONEX [Suspect]
     Active Substance: MOMETASONE FUROATE
     Dosage: UNK, DOSAGE FORM: NOT SPECIFIED (ALSO REPORTED AS INHALATION POWDER)
     Route: 065
  51. NASONEX [Suspect]
     Active Substance: MOMETASONE FUROATE
     Dosage: UNK
     Route: 065
  52. NASONEX [Suspect]
     Active Substance: MOMETASONE FUROATE
     Dosage: UNK, DOSAGE FORM: NOT SPECIFIED (ALSO REPORTED AS INHALATION POWDER)
     Route: 065
  53. NASONEX [Suspect]
     Active Substance: MOMETASONE FUROATE
     Dosage: UNK, DOSAGE FORM NOT SPECIFIED (ALSO REPORTED AS INHALATION POWDER)
     Route: 065
  54. NASONEX [Suspect]
     Active Substance: MOMETASONE FUROATE
     Dosage: UNK
     Route: 065
  55. NASONEX [Suspect]
     Active Substance: MOMETASONE FUROATE
     Dosage: UNK, DOSAGE FORM: NOT SPECIFIED (ALSO REPORTED AS INHALATION POWDER)
     Route: 065
  56. NASONEX [Suspect]
     Active Substance: MOMETASONE FUROATE
     Dosage: UNK, DOSAGE FORM: NOT SPECIFIED (ALSO REPORTED AS INHALATION POWDER)
     Route: 065
  57. NASONEX [Suspect]
     Active Substance: MOMETASONE FUROATE
     Dosage: UNK, DOSAGE FORM: NOT SPECIFIED (ALSO REPORTED AS INHALATION POWDER)
     Route: 065
  58. NASONEX [Suspect]
     Active Substance: MOMETASONE FUROATE
     Dosage: UNK
     Route: 065
  59. NASONEX [Suspect]
     Active Substance: MOMETASONE FUROATE
     Dosage: UNK
     Route: 065
  60. NASONEX [Suspect]
     Active Substance: MOMETASONE FUROATE
     Dosage: UNK, DOSAGE FORM: NOT SPECIFIED
     Route: 065
  61. NASONEX [Suspect]
     Active Substance: MOMETASONE FUROATE
     Dosage: UNK
     Route: 048
  62. NASONEX [Suspect]
     Active Substance: MOMETASONE FUROATE
     Dosage: UNK
     Route: 048
  63. NASONEX [Suspect]
     Active Substance: MOMETASONE FUROATE
     Dosage: UNK
     Route: 065
  64. NASONEX [Suspect]
     Active Substance: MOMETASONE FUROATE
     Dosage: UNK
     Route: 065
  65. NASONEX [Suspect]
     Active Substance: MOMETASONE FUROATE
     Dosage: UNK
     Route: 065
  66. NASONEX [Suspect]
     Active Substance: MOMETASONE FUROATE
     Dosage: UNK
     Route: 065
  67. NASONEX [Suspect]
     Active Substance: MOMETASONE FUROATE
     Dosage: UNK
     Route: 065
  68. NASONEX [Suspect]
     Active Substance: MOMETASONE FUROATE
     Dosage: UNK
     Route: 065
  69. NASONEX [Suspect]
     Active Substance: MOMETASONE FUROATE
     Dosage: UNK
     Route: 065
  70. NASONEX [Suspect]
     Active Substance: MOMETASONE FUROATE
     Dosage: UNK
     Route: 065
  71. ASMANEX [Suspect]
     Active Substance: MOMETASONE FUROATE
     Indication: Product used for unknown indication
     Dosage: UNK
     Route: 065
  72. MOMETASONE FUROATE [Suspect]
     Active Substance: MOMETASONE FUROATE
     Indication: Product used for unknown indication
     Dosage: UNK
     Route: 065
  73. MOMETASONE FUROATE [Suspect]
     Active Substance: MOMETASONE FUROATE
     Dosage: UNK
     Route: 065
  74. MOMETASONE FUROATE [Suspect]
     Active Substance: MOMETASONE FUROATE
     Dosage: UNK
     Route: 065
  75. MOMETASONE FUROATE [Suspect]
     Active Substance: MOMETASONE FUROATE
     Dosage: UNK (DOSAGE FORM NOT SPECIFIED)
     Route: 065
  76. MOMETASONE FUROATE [Suspect]
     Active Substance: MOMETASONE FUROATE
     Dosage: UNK
     Route: 048
  77. JANUMET [Suspect]
     Active Substance: METFORMIN HYDROCHLORIDE\SITAGLIPTIN PHOSPHATE
     Indication: Product used for unknown indication
     Dosage: DOSAGE FORM: TABLET
     Route: 065
  78. JANUMET [Suspect]
     Active Substance: METFORMIN HYDROCHLORIDE\SITAGLIPTIN PHOSPHATE
     Dosage: UNK, DOSAGE FORM NOT SPECIFIED
     Route: 065
  79. JANUMET [Suspect]
     Active Substance: METFORMIN HYDROCHLORIDE\SITAGLIPTIN PHOSPHATE
     Dosage: UNK
     Route: 065
  80. JANUMET [Suspect]
     Active Substance: METFORMIN HYDROCHLORIDE\SITAGLIPTIN PHOSPHATE
     Dosage: DOSAGE FORM: TABLET
     Route: 048
  81. JANUMET [Suspect]
     Active Substance: METFORMIN HYDROCHLORIDE\SITAGLIPTIN PHOSPHATE
     Dosage: DOSAGE FORM: TABLET
     Route: 065
  82. JANUMET [Suspect]
     Active Substance: METFORMIN HYDROCHLORIDE\SITAGLIPTIN PHOSPHATE
     Dosage: UNK
     Route: 065
  83. JANUMET [Suspect]
     Active Substance: METFORMIN HYDROCHLORIDE\SITAGLIPTIN PHOSPHATE
     Dosage: UNK
     Route: 065
  84. JANUMET [Suspect]
     Active Substance: METFORMIN HYDROCHLORIDE\SITAGLIPTIN PHOSPHATE
     Dosage: UNK
     Route: 048
  85. JANUMET [Suspect]
     Active Substance: METFORMIN HYDROCHLORIDE\SITAGLIPTIN PHOSPHATE
     Dosage: DOSAGE FORM: TABLET
     Route: 065
  86. JANUMET [Suspect]
     Active Substance: METFORMIN HYDROCHLORIDE\SITAGLIPTIN PHOSPHATE
     Dosage: DOSAGE FORM: TABLET
     Route: 065
  87. JANUMET [Suspect]
     Active Substance: METFORMIN HYDROCHLORIDE\SITAGLIPTIN PHOSPHATE
     Dosage: UNK
     Route: 048
  88. JANUMET [Suspect]
     Active Substance: METFORMIN HYDROCHLORIDE\SITAGLIPTIN PHOSPHATE
     Dosage: DOSAGE FORM: TABLET
     Route: 048
  89. JANUMET [Suspect]
     Active Substance: METFORMIN HYDROCHLORIDE\SITAGLIPTIN PHOSPHATE
     Dosage: DOSAGE FORM: TABLET
     Route: 065
  90. JANUMET [Suspect]
     Active Substance: METFORMIN HYDROCHLORIDE\SITAGLIPTIN PHOSPHATE
     Dosage: UNK
     Route: 065
  91. JANUMET [Suspect]
     Active Substance: METFORMIN HYDROCHLORIDE\SITAGLIPTIN PHOSPHATE
     Dosage: UNK
     Route: 048
  92. JANUVIA [Suspect]
     Active Substance: SITAGLIPTIN PHOSPHATE
     Indication: Product used for unknown indication
     Dosage: DOSAGE FORM: TABLET
     Route: 048
  93. JANUVIA [Suspect]
     Active Substance: SITAGLIPTIN PHOSPHATE
     Dosage: DOSAGE FORM: TABLET
     Route: 048
  94. JANUVIA [Suspect]
     Active Substance: SITAGLIPTIN PHOSPHATE
     Dosage: DOSAGE FORM: TABLET
     Route: 048
  95. JANUVIA [Suspect]
     Active Substance: SITAGLIPTIN PHOSPHATE
     Dosage: DOSAGE FORM: TABLET
     Route: 065
  96. JANUVIA [Suspect]
     Active Substance: SITAGLIPTIN PHOSPHATE
     Dosage: DOSAGE FORM: TABLET
     Route: 065
  97. JANUVIA [Suspect]
     Active Substance: SITAGLIPTIN PHOSPHATE
     Dosage: DOSAGE FORM: TABLET
     Route: 065
  98. JANUVIA [Suspect]
     Active Substance: SITAGLIPTIN PHOSPHATE
     Dosage: DOSAGE FORM: TABLET
     Route: 048
  99. JANUVIA [Suspect]
     Active Substance: SITAGLIPTIN PHOSPHATE
     Dosage: DOSAGE FORM: TABLET
     Route: 048
  100. JANUVIA [Suspect]
     Active Substance: SITAGLIPTIN PHOSPHATE
     Dosage: DOSAGE FORM: TABLET
     Route: 048
  101. JANUVIA [Suspect]
     Active Substance: SITAGLIPTIN PHOSPHATE
     Dosage: DOSAGE FORM: TABLET
     Route: 048
  102. JANUVIA [Suspect]
     Active Substance: SITAGLIPTIN PHOSPHATE
     Dosage: DOSAGE FORM: TABLET
     Route: 048
  103. JANUVIA [Suspect]
     Active Substance: SITAGLIPTIN PHOSPHATE
     Dosage: DOSAGE FORM: TABLET
     Route: 048
  104. JANUVIA [Suspect]
     Active Substance: SITAGLIPTIN PHOSPHATE
     Dosage: DOSAGE FORM: TABLET
     Route: 065
  105. JANUVIA [Suspect]
     Active Substance: SITAGLIPTIN PHOSPHATE
     Dosage: DOSAGE FORM: TABLET
     Route: 065
  106. JANUVIA [Suspect]
     Active Substance: SITAGLIPTIN PHOSPHATE
     Dosage: DOSAGE FORM: TABLET
     Route: 065
  107. JANUVIA [Suspect]
     Active Substance: SITAGLIPTIN PHOSPHATE
     Dosage: DOSAGE FORM: TABLET
     Route: 048
  108. JANUVIA [Suspect]
     Active Substance: SITAGLIPTIN PHOSPHATE
     Dosage: DOSAGE FORM: TABLET
     Route: 048
  109. JANUVIA [Suspect]
     Active Substance: SITAGLIPTIN PHOSPHATE
     Dosage: DOSAGE FORM: TABLET
     Route: 048
  110. CANAGLIFLOZIN [Suspect]
     Active Substance: CANAGLIFLOZIN
     Indication: Product used for unknown indication
     Dosage: UNK
     Route: 065
  111. CANAGLIFLOZIN [Suspect]
     Active Substance: CANAGLIFLOZIN
     Indication: Type 2 diabetes mellitus
     Dosage: UNK
     Route: 048
  112. CANAGLIFLOZIN [Suspect]
     Active Substance: CANAGLIFLOZIN
     Dosage: UNK
     Route: 048
  113. CANAGLIFLOZIN [Suspect]
     Active Substance: CANAGLIFLOZIN
     Dosage: UNK
     Route: 048
  114. CANAGLIFLOZIN [Suspect]
     Active Substance: CANAGLIFLOZIN
     Dosage: UNK
     Route: 048
  115. CANAGLIFLOZIN [Suspect]
     Active Substance: CANAGLIFLOZIN
     Dosage: UNK
     Route: 048
  116. CANAGLIFLOZIN [Suspect]
     Active Substance: CANAGLIFLOZIN
     Dosage: UNK
     Route: 048
  117. CANAGLIFLOZIN [Suspect]
     Active Substance: CANAGLIFLOZIN
     Dosage: UNK
     Route: 065
  118. CANAGLIFLOZIN [Suspect]
     Active Substance: CANAGLIFLOZIN
     Dosage: UNK
     Route: 065
  119. CANAGLIFLOZIN [Suspect]
     Active Substance: CANAGLIFLOZIN
     Dosage: UNK
     Route: 048
  120. CANAGLIFLOZIN [Suspect]
     Active Substance: CANAGLIFLOZIN
     Dosage: UNK
     Route: 048
  121. CANAGLIFLOZIN [Suspect]
     Active Substance: CANAGLIFLOZIN
     Dosage: UNK (DOSAGE FORM NOT SPECIFIED)
     Route: 048
  122. CANAGLIFLOZIN [Suspect]
     Active Substance: CANAGLIFLOZIN
     Dosage: UNK (DOSAGE FORM NOT SPECIFIED)
     Route: 048
  123. CANAGLIFLOZIN [Suspect]
     Active Substance: CANAGLIFLOZIN
     Dosage: UNK (DOSAGE FORM NOT SPECIFIED)
     Route: 065
  124. CANAGLIFLOZIN [Suspect]
     Active Substance: CANAGLIFLOZIN
     Dosage: UNK (DOSAGE FORM NOT SPECIFIED)
     Route: 065
  125. CANAGLIFLOZIN [Suspect]
     Active Substance: CANAGLIFLOZIN
     Dosage: UNK
     Route: 065
  126. CANAGLIFLOZIN [Suspect]
     Active Substance: CANAGLIFLOZIN
     Dosage: UNK
     Route: 048
  127. CANAGLIFLOZIN [Suspect]
     Active Substance: CANAGLIFLOZIN
     Dosage: UNK
     Route: 048
  128. CANAGLIFLOZIN [Suspect]
     Active Substance: CANAGLIFLOZIN
     Dosage: UNK
     Route: 065
  129. CANAGLIFLOZIN [Suspect]
     Active Substance: CANAGLIFLOZIN
     Dosage: UNK
     Route: 065
  130. CANAGLIFLOZIN [Suspect]
     Active Substance: CANAGLIFLOZIN
     Dosage: UNK
     Route: 065
  131. CANAGLIFLOZIN [Suspect]
     Active Substance: CANAGLIFLOZIN
     Dosage: UNK
     Route: 065
  132. CANAGLIFLOZIN [Suspect]
     Active Substance: CANAGLIFLOZIN
     Dosage: UNK
     Route: 065
  133. CANAGLIFLOZIN [Suspect]
     Active Substance: CANAGLIFLOZIN
     Dosage: UNK
     Route: 048
  134. CANAGLIFLOZIN [Suspect]
     Active Substance: CANAGLIFLOZIN
     Dosage: UNK
     Route: 048
  135. CANAGLIFLOZIN [Suspect]
     Active Substance: CANAGLIFLOZIN
     Dosage: UNK
     Route: 048
  136. CANAGLIFLOZIN [Suspect]
     Active Substance: CANAGLIFLOZIN
     Dosage: UNK
     Route: 048
  137. BUDESONIDE\FORMOTEROL FUMARATE [Suspect]
     Active Substance: BUDESONIDE\FORMOTEROL FUMARATE
     Indication: Product used for unknown indication
     Dosage: UNK
     Route: 065
  138. BUDESONIDE\FORMOTEROL FUMARATE [Suspect]
     Active Substance: BUDESONIDE\FORMOTEROL FUMARATE
     Dosage: UNK
     Route: 065
  139. BUDESONIDE\FORMOTEROL FUMARATE [Suspect]
     Active Substance: BUDESONIDE\FORMOTEROL FUMARATE
     Dosage: UNK
     Route: 065
  140. BUDESONIDE\FORMOTEROL FUMARATE [Suspect]
     Active Substance: BUDESONIDE\FORMOTEROL FUMARATE
     Dosage: DOSAGE FORM NOT SPECIFIED
     Route: 065
  141. BUDESONIDE\FORMOTEROL FUMARATE [Suspect]
     Active Substance: BUDESONIDE\FORMOTEROL FUMARATE
     Dosage: UNK
     Route: 065
  142. BUDESONIDE\FORMOTEROL FUMARATE [Suspect]
     Active Substance: BUDESONIDE\FORMOTEROL FUMARATE
     Dosage: UNK
     Route: 065
  143. BUDESONIDE\FORMOTEROL FUMARATE [Suspect]
     Active Substance: BUDESONIDE\FORMOTEROL FUMARATE
     Dosage: UNK
     Route: 065
  144. BUDESONIDE\FORMOTEROL FUMARATE [Suspect]
     Active Substance: BUDESONIDE\FORMOTEROL FUMARATE
     Dosage: DOSAGE FORM NOT SPECIFIED
  145. BUDESONIDE\FORMOTEROL FUMARATE [Suspect]
     Active Substance: BUDESONIDE\FORMOTEROL FUMARATE
     Dosage: UNK
  146. BUDESONIDE\FORMOTEROL FUMARATE [Suspect]
     Active Substance: BUDESONIDE\FORMOTEROL FUMARATE
     Dosage: UNK
     Route: 065
  147. BUDESONIDE\FORMOTEROL FUMARATE [Suspect]
     Active Substance: BUDESONIDE\FORMOTEROL FUMARATE
     Dosage: UNK
     Route: 065
  148. BUDESONIDE\FORMOTEROL FUMARATE [Suspect]
     Active Substance: BUDESONIDE\FORMOTEROL FUMARATE
     Dosage: DOSAGE FORM NOT SPECIFIED
     Route: 065
  149. BUDESONIDE\FORMOTEROL FUMARATE [Suspect]
     Active Substance: BUDESONIDE\FORMOTEROL FUMARATE
     Dosage: UNK
     Route: 065
  150. BUDESONIDE\FORMOTEROL FUMARATE [Suspect]
     Active Substance: BUDESONIDE\FORMOTEROL FUMARATE
     Dosage: UNK
     Route: 065
  151. BUDESONIDE\FORMOTEROL FUMARATE [Suspect]
     Active Substance: BUDESONIDE\FORMOTEROL FUMARATE
     Dosage: UNK
     Route: 065
  152. BUDESONIDE\FORMOTEROL FUMARATE [Suspect]
     Active Substance: BUDESONIDE\FORMOTEROL FUMARATE
     Dosage: DOSAGE FORM NOT SPECIFIED
     Route: 065
  153. DILTIAZEM HYDROCHLORIDE [Suspect]
     Active Substance: DILTIAZEM HYDROCHLORIDE
     Indication: Product used for unknown indication
     Dosage: UNK
     Route: 048
  154. DILTIAZEM HYDROCHLORIDE [Suspect]
     Active Substance: DILTIAZEM HYDROCHLORIDE
     Dosage: UNK
     Route: 065
  155. DILTIAZEM HYDROCHLORIDE [Suspect]
     Active Substance: DILTIAZEM HYDROCHLORIDE
     Dosage: UNK
     Route: 065
  156. DILTIAZEM HYDROCHLORIDE [Suspect]
     Active Substance: DILTIAZEM HYDROCHLORIDE
     Dosage: UNK
     Route: 048
  157. DILTIAZEM HYDROCHLORIDE [Suspect]
     Active Substance: DILTIAZEM HYDROCHLORIDE
     Dosage: UNK
     Route: 065
  158. DILTIAZEM HYDROCHLORIDE [Suspect]
     Active Substance: DILTIAZEM HYDROCHLORIDE
     Dosage: UNK
     Route: 065
  159. DILTIAZEM HYDROCHLORIDE [Suspect]
     Active Substance: DILTIAZEM HYDROCHLORIDE
     Dosage: UNK
     Route: 048
  160. DILTIAZEM HYDROCHLORIDE [Suspect]
     Active Substance: DILTIAZEM HYDROCHLORIDE
     Dosage: UNK
     Route: 065
  161. DILTIAZEM HYDROCHLORIDE [Suspect]
     Active Substance: DILTIAZEM HYDROCHLORIDE
     Dosage: UNK
     Route: 065
  162. DILTIAZEM HYDROCHLORIDE [Suspect]
     Active Substance: DILTIAZEM HYDROCHLORIDE
     Dosage: UNK
     Route: 048
  163. DILTIAZEM HYDROCHLORIDE [Suspect]
     Active Substance: DILTIAZEM HYDROCHLORIDE
     Dosage: UNK
     Route: 065
  164. DILTIAZEM HYDROCHLORIDE [Suspect]
     Active Substance: DILTIAZEM HYDROCHLORIDE
     Dosage: UNK
     Route: 065
  165. FERROUS SULFATE [Suspect]
     Active Substance: FERROUS SULFATE
     Indication: Product used for unknown indication
     Dosage: DOSAGE FORM NOT SPECIFIED
     Route: 065
  166. FERROUS SULFATE [Suspect]
     Active Substance: FERROUS SULFATE
     Dosage: DOSAGE FORM NOT SPECIFIED
     Route: 065
  167. FERROUS SULFATE [Suspect]
     Active Substance: FERROUS SULFATE
     Dosage: DOSAGE FORM NOT SPECIFIED
     Route: 065
  168. FERROUS SULFATE [Suspect]
     Active Substance: FERROUS SULFATE
     Dosage: DOSAGE FORM NOT SPECIFIED
     Route: 065
  169. FERROUS SULFATE [Suspect]
     Active Substance: FERROUS SULFATE
     Dosage: DOSAGE FORM NOT SPECIFIED
     Route: 065
  170. FERROUS SULFATE [Suspect]
     Active Substance: FERROUS SULFATE
     Dosage: DOSAGE FORM NOT SPECIFIED
     Route: 065
  171. FERROUS SULFATE [Suspect]
     Active Substance: FERROUS SULFATE
     Dosage: DOSAGE FORM NOT SPECIFIED
     Route: 065
  172. FERROUS SULFATE [Suspect]
     Active Substance: FERROUS SULFATE
     Dosage: DOSAGE FORM NOT SPECIFIED
     Route: 065
  173. FERROUS SULFATE [Suspect]
     Active Substance: FERROUS SULFATE
     Dosage: DOSAGE FORM NOT SPECIFIED
     Route: 065
  174. FERROUS SULFATE [Suspect]
     Active Substance: FERROUS SULFATE
     Dosage: DOSAGE FORM NOT SPECIFIED
     Route: 065
  175. FERROUS SULFATE [Suspect]
     Active Substance: FERROUS SULFATE
     Dosage: DOSAGE FORM NOT SPECIFIED
     Route: 065
  176. FERROUS SULFATE [Suspect]
     Active Substance: FERROUS SULFATE
     Dosage: DOSAGE FORM NOT SPECIFIED
     Route: 065
  177. FERROUS SULFATE [Suspect]
     Active Substance: FERROUS SULFATE
     Dosage: DOSAGE FORM NOT SPECIFIED
     Route: 065
  178. FERROUS SULFATE [Suspect]
     Active Substance: FERROUS SULFATE
     Dosage: DOSAGE FORM NOT SPECIFIED
     Route: 065
  179. FERROUS SULFATE [Suspect]
     Active Substance: FERROUS SULFATE
     Dosage: DOSAGE FORM NOT SPECIFIED
     Route: 065
  180. FERROUS SULFATE [Suspect]
     Active Substance: FERROUS SULFATE
     Dosage: DOSAGE FORM NOT SPECIFIED
     Route: 065
  181. FERROUS SULFATE [Suspect]
     Active Substance: FERROUS SULFATE
     Dosage: DOSAGE FORM NOT SPECIFIED
     Route: 065
  182. FORMOTEROL FUMARATE [Suspect]
     Active Substance: FORMOTEROL FUMARATE
     Indication: Product used for unknown indication
     Dosage: UNK
     Route: 005
  183. FORMOTEROL FUMARATE [Suspect]
     Active Substance: FORMOTEROL FUMARATE
     Dosage: UNK
     Route: 005
  184. FORMOTEROL FUMARATE [Suspect]
     Active Substance: FORMOTEROL FUMARATE
     Dosage: DOSAGE FORM NOT SPECIFIED
     Route: 005
  185. FORMOTEROL FUMARATE [Suspect]
     Active Substance: FORMOTEROL FUMARATE
     Dosage: DOSAGE FORM NOT SPECIFIED
     Route: 065
  186. FORMOTEROL FUMARATE [Suspect]
     Active Substance: FORMOTEROL FUMARATE
     Dosage: UNK
  187. FORMOTEROL FUMARATE [Suspect]
     Active Substance: FORMOTEROL FUMARATE
     Dosage: UNK
     Route: 065
  188. FORMOTEROL FUMARATE [Suspect]
     Active Substance: FORMOTEROL FUMARATE
     Dosage: UNK
     Route: 065
  189. FORMOTEROL FUMARATE [Suspect]
     Active Substance: FORMOTEROL FUMARATE
     Dosage: DOSAGE FORM: NOT SPECIFIED
     Route: 065
  190. FORMOTEROL FUMARATE [Suspect]
     Active Substance: FORMOTEROL FUMARATE
     Dosage: UNK
     Route: 065
  191. FORMOTEROL FUMARATE [Suspect]
     Active Substance: FORMOTEROL FUMARATE
     Dosage: UNK
     Route: 065
  192. FORMOTEROL FUMARATE [Suspect]
     Active Substance: FORMOTEROL FUMARATE
     Dosage: DOSAGE FORM: NOT SPECIFIED
     Route: 065
  193. FORMOTEROL FUMARATE [Suspect]
     Active Substance: FORMOTEROL FUMARATE
     Dosage: UNK
     Route: 065
  194. FORMOTEROL FUMARATE [Suspect]
     Active Substance: FORMOTEROL FUMARATE
     Dosage: UNK
     Route: 065
  195. FORMOTEROL FUMARATE [Suspect]
     Active Substance: FORMOTEROL FUMARATE
     Dosage: UNK
     Route: 065
  196. FORMOTEROL FUMARATE [Suspect]
     Active Substance: FORMOTEROL FUMARATE
     Dosage: UNK
     Route: 065
  197. FORMOTEROL FUMARATE [Suspect]
     Active Substance: FORMOTEROL FUMARATE
     Dosage: UNK
  198. INVOKANA [Suspect]
     Active Substance: CANAGLIFLOZIN
     Indication: Product used for unknown indication
     Dosage: UNK
     Route: 048
  199. INVOKANA [Suspect]
     Active Substance: CANAGLIFLOZIN
     Indication: Type 2 diabetes mellitus
     Dosage: UNK
     Route: 048
  200. INVOKANA [Suspect]
     Active Substance: CANAGLIFLOZIN
     Dosage: UNK
     Route: 065
  201. INVOKANA [Suspect]
     Active Substance: CANAGLIFLOZIN
     Dosage: UNK
     Route: 065
  202. INVOKANA [Suspect]
     Active Substance: CANAGLIFLOZIN
     Dosage: UNK
     Route: 048
  203. INVOKANA [Suspect]
     Active Substance: CANAGLIFLOZIN
     Dosage: UNK
     Route: 065
  204. INVOKANA [Suspect]
     Active Substance: CANAGLIFLOZIN
     Dosage: UNK
     Route: 048
  205. INVOKANA [Suspect]
     Active Substance: CANAGLIFLOZIN
     Dosage: UNK
     Route: 048
  206. INVOKANA [Suspect]
     Active Substance: CANAGLIFLOZIN
     Dosage: UNK
     Route: 048
  207. INVOKANA [Suspect]
     Active Substance: CANAGLIFLOZIN
     Dosage: UNK
     Route: 048
  208. FERROUS SULFATE ANHYDROUS [Suspect]
     Active Substance: FERROUS SULFATE ANHYDROUS
     Indication: Product used for unknown indication
     Dosage: UNK, DOSAGE FORM: NOT SPECIFIED
     Route: 065
  209. FERROUS SULFATE ANHYDROUS [Suspect]
     Active Substance: FERROUS SULFATE ANHYDROUS
     Dosage: UNK, DOSAGE FORM: NOT SPECIFIED
     Route: 065
  210. FERROUS SULFATE ANHYDROUS [Suspect]
     Active Substance: FERROUS SULFATE ANHYDROUS
     Dosage: UNK, DOSAGE FORM: NOT SPECIFIED
     Route: 065
  211. FERROUS SULFATE ANHYDROUS [Suspect]
     Active Substance: FERROUS SULFATE ANHYDROUS
     Dosage: UNK, DOSAGE FORM: NOT SPECIFIED
     Route: 065
  212. FERROUS SULFATE ANHYDROUS [Suspect]
     Active Substance: FERROUS SULFATE ANHYDROUS
     Dosage: UNK, DOSAGE FORM: NOT SPECIFIED
     Route: 065
  213. FERROUS SULFATE ANHYDROUS [Suspect]
     Active Substance: FERROUS SULFATE ANHYDROUS
     Dosage: UNK, DOSAGE FORM: NOT SPECIFIED
     Route: 065
  214. FERROUS SULFATE ANHYDROUS [Suspect]
     Active Substance: FERROUS SULFATE ANHYDROUS
     Dosage: UNK, DOSAGE FORM: NOT SPECIFIED
     Route: 065
  215. FERROUS SULFATE ANHYDROUS [Suspect]
     Active Substance: FERROUS SULFATE ANHYDROUS
     Dosage: UNK, DOSAGE FORM: NOT SPECIFIED
     Route: 065
  216. FERROUS SULFATE ANHYDROUS [Suspect]
     Active Substance: FERROUS SULFATE ANHYDROUS
     Dosage: UNK, DOSAGE FORM: NOT SPECIFIED
     Route: 065
  217. FERROUS SULFATE ANHYDROUS [Suspect]
     Active Substance: FERROUS SULFATE ANHYDROUS
     Dosage: UNK, DOSAGE FORM: NOT SPECIFIED
     Route: 065
  218. FERROUS SULFATE ANHYDROUS [Suspect]
     Active Substance: FERROUS SULFATE ANHYDROUS
     Dosage: UNK
     Route: 065
  219. FERROUS SULFATE ANHYDROUS [Suspect]
     Active Substance: FERROUS SULFATE ANHYDROUS
     Dosage: UNK
     Route: 065
  220. FERROUS SULFATE ANHYDROUS [Suspect]
     Active Substance: FERROUS SULFATE ANHYDROUS
     Dosage: UNK
     Route: 065
  221. BUDESONIDE [Suspect]
     Active Substance: BUDESONIDE
     Indication: Product used for unknown indication
     Dosage: UNK; DOSAGE FORM: NOT SPECIFIED
     Route: 048
  222. BUDESONIDE [Suspect]
     Active Substance: BUDESONIDE
     Dosage: UNK, DOSAGE FORM: NOT SPECIFIED
     Route: 048
  223. BUDESONIDE [Suspect]
     Active Substance: BUDESONIDE
     Dosage: UNK
     Route: 048
  224. BUDESONIDE [Suspect]
     Active Substance: BUDESONIDE
     Dosage: UNK
     Route: 048
  225. BUDESONIDE [Suspect]
     Active Substance: BUDESONIDE
     Dosage: UNK
     Route: 065
  226. BUDESONIDE [Suspect]
     Active Substance: BUDESONIDE
     Dosage: UNK
     Route: 065
  227. BUDESONIDE [Suspect]
     Active Substance: BUDESONIDE
     Dosage: UNK, DOSAGE FORM: NOT SPECIFIED
     Route: 048
  228. BUDESONIDE [Suspect]
     Active Substance: BUDESONIDE
     Dosage: UNK, DOSAGE FORM: NOT SPECIFIED
     Route: 048
  229. BUDESONIDE [Suspect]
     Active Substance: BUDESONIDE
     Dosage: UNK
     Route: 048
  230. BUDESONIDE [Suspect]
     Active Substance: BUDESONIDE
     Dosage: UNK
     Route: 050
  231. BUDESONIDE [Suspect]
     Active Substance: BUDESONIDE
     Dosage: UNK
     Route: 065
  232. BUDESONIDE [Suspect]
     Active Substance: BUDESONIDE
     Dosage: UNK, DOSAGE FORM: NOT SPECIFIED
     Route: 065
  233. BUDESONIDE [Suspect]
     Active Substance: BUDESONIDE
     Dosage: UNK
     Route: 065
  234. BUDESONIDE [Suspect]
     Active Substance: BUDESONIDE
     Dosage: UNK
     Route: 065
  235. BUDESONIDE [Suspect]
     Active Substance: BUDESONIDE
     Dosage: UNK, DOSAGE FORM: NOT SPECIFIED
     Route: 065
  236. BUDESONIDE [Suspect]
     Active Substance: BUDESONIDE
     Dosage: 3011.2 MILLIGRAM; DOSAGE FORM: NOT SPECIFIED
     Route: 050
  237. BUDESONIDE [Suspect]
     Active Substance: BUDESONIDE
     Dosage: UNK, DOSAGE FORM: NOT SPECIFIED
     Route: 065
  238. BUDESONIDE [Suspect]
     Active Substance: BUDESONIDE
     Dosage: UNK, DOSAGE FORM: NOT SPECIFIED
  239. BUDESONIDE [Suspect]
     Active Substance: BUDESONIDE
     Dosage: UNK
  240. BUDESONIDE [Suspect]
     Active Substance: BUDESONIDE
     Dosage: UNK
  241. LANSOPRAZOLE [Suspect]
     Active Substance: LANSOPRAZOLE
     Indication: Product used for unknown indication
     Dosage: UNK
     Route: 065
  242. LANSOPRAZOLE [Suspect]
     Active Substance: LANSOPRAZOLE
     Dosage: UNK
     Route: 048
  243. LANSOPRAZOLE [Suspect]
     Active Substance: LANSOPRAZOLE
     Dosage: UNK
     Route: 065
  244. LANSOPRAZOLE [Suspect]
     Active Substance: LANSOPRAZOLE
     Dosage: UNK
     Route: 048
  245. LANSOPRAZOLE [Suspect]
     Active Substance: LANSOPRAZOLE
     Indication: Product used for unknown indication
     Dosage: UNK
     Route: 048
  246. LANSOPRAZOLE [Suspect]
     Active Substance: LANSOPRAZOLE
     Dosage: UNK
     Route: 048
  247. LANSOPRAZOLE [Suspect]
     Active Substance: LANSOPRAZOLE
     Dosage: UNK
     Route: 048
  248. LANSOPRAZOLE [Suspect]
     Active Substance: LANSOPRAZOLE
     Dosage: UNK
     Route: 048
  249. LANSOPRAZOLE [Suspect]
     Active Substance: LANSOPRAZOLE
     Dosage: UNK
     Route: 048
  250. LANSOPRAZOLE [Suspect]
     Active Substance: LANSOPRAZOLE
     Dosage: UNK
     Route: 065
  251. LANSOPRAZOLE [Suspect]
     Active Substance: LANSOPRAZOLE
     Dosage: UNK
     Route: 048
  252. LANSOPRAZOLE [Suspect]
     Active Substance: LANSOPRAZOLE
     Dosage: UNK
     Route: 048
  253. LANSOPRAZOLE [Suspect]
     Active Substance: LANSOPRAZOLE
     Dosage: UNK
     Route: 048
  254. LANSOPRAZOLE [Suspect]
     Active Substance: LANSOPRAZOLE
     Dosage: UNK
     Route: 048
  255. LANSOPRAZOLE [Suspect]
     Active Substance: LANSOPRAZOLE
     Dosage: UNK
     Route: 048
  256. LANSOPRAZOLE [Suspect]
     Active Substance: LANSOPRAZOLE
     Dosage: UNK
     Route: 048
  257. LANSOPRAZOLE [Suspect]
     Active Substance: LANSOPRAZOLE
     Dosage: UNK
     Route: 048
  258. LANSOPRAZOLE [Suspect]
     Active Substance: LANSOPRAZOLE
     Dosage: UNK
     Route: 065
  259. LANSOPRAZOLE [Suspect]
     Active Substance: LANSOPRAZOLE
     Dosage: UNK
     Route: 065
  260. LANSOPRAZOLE [Suspect]
     Active Substance: LANSOPRAZOLE
     Dosage: UNK
     Route: 065
  261. LANSOPRAZOLE [Suspect]
     Active Substance: LANSOPRAZOLE
     Indication: Product used for unknown indication
     Dosage: UNK
     Route: 048
  262. LANSOPRAZOLE [Suspect]
     Active Substance: LANSOPRAZOLE
     Dosage: UNK
     Route: 048
  263. LANSOPRAZOLE [Suspect]
     Active Substance: LANSOPRAZOLE
     Dosage: UNK
     Route: 048
  264. LANSOPRAZOLE [Suspect]
     Active Substance: LANSOPRAZOLE
     Dosage: UNK
     Route: 048
  265. LANSOPRAZOLE [Suspect]
     Active Substance: LANSOPRAZOLE
     Dosage: UNK
     Route: 048
  266. LANSOPRAZOLE [Suspect]
     Active Substance: LANSOPRAZOLE
     Dosage: UNK
     Route: 048
  267. LANSOPRAZOLE [Suspect]
     Active Substance: LANSOPRAZOLE
     Dosage: UNK
     Route: 065
  268. LANSOPRAZOLE [Suspect]
     Active Substance: LANSOPRAZOLE
     Dosage: UNK
     Route: 065
  269. LANSOPRAZOLE [Suspect]
     Active Substance: LANSOPRAZOLE
     Dosage: UNK, QD (1 EVERY 1 DAYS)
     Route: 065
  270. LANSOPRAZOLE [Suspect]
     Active Substance: LANSOPRAZOLE
     Dosage: UNK, QD ( 1 EVERY 1 DAYS)
     Route: 048
  271. LEVOTHYROXINE SODIUM [Suspect]
     Active Substance: LEVOTHYROXINE SODIUM
     Indication: Product used for unknown indication
     Dosage: UNK, DOSAGE FORM NOT SPECIFIED
     Route: 005
  272. LEVOTHYROXINE SODIUM [Suspect]
     Active Substance: LEVOTHYROXINE SODIUM
     Dosage: UNK, DOSAGE FORM NOT SPECIFIED
     Route: 048
  273. LEVOTHYROXINE SODIUM [Suspect]
     Active Substance: LEVOTHYROXINE SODIUM
     Dosage: UNK, DOSAGE FORM NOT SPECIFIED
     Route: 065
  274. LEVOTHYROXINE SODIUM [Suspect]
     Active Substance: LEVOTHYROXINE SODIUM
     Dosage: UNK, DOSAGE FORM NOT SPECIFIED
     Route: 005
  275. LEVOTHYROXINE SODIUM [Suspect]
     Active Substance: LEVOTHYROXINE SODIUM
     Dosage: UNK, DOSAGE FORM NOT SPECIFIED
     Route: 048
  276. LEVOTHYROXINE SODIUM [Suspect]
     Active Substance: LEVOTHYROXINE SODIUM
     Dosage: UNK, DOSAGE FORM NOT SPECIFIED
     Route: 048
  277. LEVOTHYROXINE SODIUM [Suspect]
     Active Substance: LEVOTHYROXINE SODIUM
     Dosage: UNK
     Route: 065
  278. LEVOTHYROXINE SODIUM [Suspect]
     Active Substance: LEVOTHYROXINE SODIUM
     Dosage: UNK
     Route: 065
  279. LEVOTHYROXINE SODIUM [Suspect]
     Active Substance: LEVOTHYROXINE SODIUM
     Dosage: UNK
     Route: 065
  280. LEVOTHYROXINE SODIUM [Suspect]
     Active Substance: LEVOTHYROXINE SODIUM
     Dosage: UNK
     Route: 065
  281. METFORMIN HYDROCHLORIDE [Suspect]
     Active Substance: METFORMIN HYDROCHLORIDE
     Indication: Product used for unknown indication
     Dosage: 500 MILLIGRAM
     Route: 048
  282. METFORMIN HYDROCHLORIDE [Suspect]
     Active Substance: METFORMIN HYDROCHLORIDE
     Indication: Gastrooesophageal reflux disease
     Dosage: UNK
     Route: 048
  283. METFORMIN HYDROCHLORIDE [Suspect]
     Active Substance: METFORMIN HYDROCHLORIDE
     Dosage: UNK
     Route: 048
  284. METFORMIN HYDROCHLORIDE [Suspect]
     Active Substance: METFORMIN HYDROCHLORIDE
     Dosage: UNK
     Route: 048
  285. METFORMIN HYDROCHLORIDE [Suspect]
     Active Substance: METFORMIN HYDROCHLORIDE
     Dosage: UNK
     Route: 065
  286. METFORMIN HYDROCHLORIDE [Suspect]
     Active Substance: METFORMIN HYDROCHLORIDE
     Dosage: UNK
     Route: 048
  287. METFORMIN HYDROCHLORIDE [Suspect]
     Active Substance: METFORMIN HYDROCHLORIDE
     Dosage: UNK
     Route: 048
  288. METFORMIN HYDROCHLORIDE [Suspect]
     Active Substance: METFORMIN HYDROCHLORIDE
     Dosage: UNK
     Route: 048
  289. METFORMIN HYDROCHLORIDE [Suspect]
     Active Substance: METFORMIN HYDROCHLORIDE
     Dosage: UNK
     Route: 048
  290. METFORMIN HYDROCHLORIDE [Suspect]
     Active Substance: METFORMIN HYDROCHLORIDE
     Dosage: UNK
     Route: 048
  291. METFORMIN HYDROCHLORIDE [Suspect]
     Active Substance: METFORMIN HYDROCHLORIDE
     Dosage: UNK
     Route: 048
  292. METFORMIN HYDROCHLORIDE [Suspect]
     Active Substance: METFORMIN HYDROCHLORIDE
     Dosage: 500 MILLIGRAM
     Route: 065
  293. METFORMIN HYDROCHLORIDE [Suspect]
     Active Substance: METFORMIN HYDROCHLORIDE
     Dosage: UNK
     Route: 065
  294. METFORMIN HYDROCHLORIDE [Suspect]
     Active Substance: METFORMIN HYDROCHLORIDE
     Dosage: UNK
     Route: 065
  295. METFORMIN HYDROCHLORIDE [Suspect]
     Active Substance: METFORMIN HYDROCHLORIDE
     Dosage: UNK
     Route: 065
  296. METFORMIN HYDROCHLORIDE [Suspect]
     Active Substance: METFORMIN HYDROCHLORIDE
     Dosage: UNK
     Route: 065
  297. METFORMIN HYDROCHLORIDE [Suspect]
     Active Substance: METFORMIN HYDROCHLORIDE
     Dosage: UNK
     Route: 065
  298. XOLAIR [Suspect]
     Active Substance: OMALIZUMAB
     Indication: Product used for unknown indication
     Dosage: UNK
     Route: 065
  299. XOLAIR [Suspect]
     Active Substance: OMALIZUMAB
     Dosage: DOSAGE FORM: NOT SPECIFIED
     Route: 065
  300. XOLAIR [Suspect]
     Active Substance: OMALIZUMAB
     Dosage: DOSAGE FORM: NOT SPECIFIED
     Route: 065
  301. XOLAIR [Suspect]
     Active Substance: OMALIZUMAB
     Dosage: DOSAGE FORM: NOT SPECIFIED
     Route: 065
  302. XOLAIR [Suspect]
     Active Substance: OMALIZUMAB
     Dosage: UNK
     Route: 065
  303. XOLAIR [Suspect]
     Active Substance: OMALIZUMAB
     Dosage: UNK
     Route: 065
  304. XOLAIR [Suspect]
     Active Substance: OMALIZUMAB
     Dosage: UNK
     Route: 065
  305. XOLAIR [Suspect]
     Active Substance: OMALIZUMAB
     Dosage: DOSAGE FORM: NOT SPECIFIED
     Route: 065
  306. XOLAIR [Suspect]
     Active Substance: OMALIZUMAB
     Dosage: DOSAGE FORM: NOT SPECIFIED
     Route: 065
  307. PREDNISONE [Suspect]
     Active Substance: PREDNISONE
     Indication: Product used for unknown indication
     Dosage: UNK, DOSAGE FORM: NOT SPECIFIED
     Route: 065
  308. PREDNISONE [Suspect]
     Active Substance: PREDNISONE
     Dosage: UNK, DOSAGE FORM: NOT SPECIFIED
     Route: 048
  309. PREDNISONE [Suspect]
     Active Substance: PREDNISONE
     Dosage: UNK, DOSAGE FORM: NOT SPECIFIED
     Route: 065
  310. PREDNISONE [Suspect]
     Active Substance: PREDNISONE
     Dosage: UNK, DOSAGE FORM: NOT SPECIFIED
     Route: 065
  311. PREDNISONE [Suspect]
     Active Substance: PREDNISONE
     Dosage: UNK
     Route: 065
  312. PREVACID [Suspect]
     Active Substance: LANSOPRAZOLE
     Indication: Product used for unknown indication
     Dosage: UNK
     Route: 048
  313. PREVACID [Suspect]
     Active Substance: LANSOPRAZOLE
     Dosage: UNK
     Route: 065
  314. PREVACID [Suspect]
     Active Substance: LANSOPRAZOLE
     Dosage: UNK
     Route: 048
  315. PREVACID [Suspect]
     Active Substance: LANSOPRAZOLE
     Dosage: UNK
     Route: 048
  316. PREVACID [Suspect]
     Active Substance: LANSOPRAZOLE
     Dosage: UNK
     Route: 048
  317. PREVACID [Suspect]
     Active Substance: LANSOPRAZOLE
     Dosage: UNK
     Route: 048
  318. PREVACID [Suspect]
     Active Substance: LANSOPRAZOLE
     Dosage: UNK
     Route: 048
  319. PREVACID [Suspect]
     Active Substance: LANSOPRAZOLE
     Dosage: UNK
     Route: 065
  320. PREVACID [Suspect]
     Active Substance: LANSOPRAZOLE
     Dosage: UNK
     Route: 048
  321. PREVACID [Suspect]
     Active Substance: LANSOPRAZOLE
     Dosage: UNK
     Route: 048
  322. PREVACID [Suspect]
     Active Substance: LANSOPRAZOLE
     Dosage: 1 EVERY 1 DAY
     Route: 065
  323. PREVACID [Suspect]
     Active Substance: LANSOPRAZOLE
     Dosage: EVERY 1 DAY
     Route: 065
  324. PREVACID [Suspect]
     Active Substance: LANSOPRAZOLE
     Dosage: UNK
     Route: 048
  325. PREVACID [Suspect]
     Active Substance: LANSOPRAZOLE
     Dosage: UNK
     Route: 065
  326. PREVACID [Suspect]
     Active Substance: LANSOPRAZOLE
     Dosage: UNK
     Route: 048
  327. PREVACID [Suspect]
     Active Substance: LANSOPRAZOLE
     Dosage: EVERY 1 DAY
     Route: 048
  328. PREVACID [Suspect]
     Active Substance: LANSOPRAZOLE
     Dosage: UNK
     Route: 048
  329. PREVACID [Suspect]
     Active Substance: LANSOPRAZOLE
     Dosage: UNK
     Route: 065
  330. PREVACID [Suspect]
     Active Substance: LANSOPRAZOLE
     Dosage: UNK
     Route: 048
  331. PREVACID [Suspect]
     Active Substance: LANSOPRAZOLE
     Dosage: UNK
     Route: 048
  332. PREVACID [Suspect]
     Active Substance: LANSOPRAZOLE
     Dosage: UNK
     Route: 048
  333. PREVACID [Suspect]
     Active Substance: LANSOPRAZOLE
     Dosage: UNK
     Route: 048
  334. PREVACID [Suspect]
     Active Substance: LANSOPRAZOLE
     Dosage: UNK
     Route: 048
  335. PREVACID [Suspect]
     Active Substance: LANSOPRAZOLE
     Dosage: UNK
     Route: 048
  336. PREVACID [Suspect]
     Active Substance: LANSOPRAZOLE
     Dosage: UNK
     Route: 048
  337. PREVACID [Suspect]
     Active Substance: LANSOPRAZOLE
     Dosage: UNK
     Route: 048
  338. PREVACID [Suspect]
     Active Substance: LANSOPRAZOLE
     Dosage: UNK
     Route: 048
  339. PREVACID [Suspect]
     Active Substance: LANSOPRAZOLE
     Dosage: UNK
     Route: 048
  340. PREVACID [Suspect]
     Active Substance: LANSOPRAZOLE
     Dosage: UNK
     Route: 065
  341. PREVACID [Suspect]
     Active Substance: LANSOPRAZOLE
     Dosage: UNK
     Route: 065
  342. PREVACID [Suspect]
     Active Substance: LANSOPRAZOLE
     Dosage: UNK
     Route: 065
  343. PREVACID [Suspect]
     Active Substance: LANSOPRAZOLE
     Dosage: UNK
     Route: 065
  344. PREVACID [Suspect]
     Active Substance: LANSOPRAZOLE
     Dosage: UNK
     Route: 065
  345. PREVACID [Suspect]
     Active Substance: LANSOPRAZOLE
     Dosage: UNK
     Route: 065
  346. PREVACID [Suspect]
     Active Substance: LANSOPRAZOLE
     Dosage: UNK
     Route: 048
  347. PREVACID [Suspect]
     Active Substance: LANSOPRAZOLE
     Dosage: UNK
     Route: 048
  348. PREVACID [Suspect]
     Active Substance: LANSOPRAZOLE
     Dosage: UNK
     Route: 048
  349. PREVACID [Suspect]
     Active Substance: LANSOPRAZOLE
     Dosage: UNK
     Route: 048
  350. PREVACID [Suspect]
     Active Substance: LANSOPRAZOLE
     Dosage: UNK
     Route: 048
  351. PREVACID [Suspect]
     Active Substance: LANSOPRAZOLE
     Dosage: UNK
     Route: 065
  352. PREVACID [Suspect]
     Active Substance: LANSOPRAZOLE
     Dosage: UNK
     Route: 065
  353. PREVACID [Suspect]
     Active Substance: LANSOPRAZOLE
     Dosage: UNK
     Route: 065
  354. PREVACID [Suspect]
     Active Substance: LANSOPRAZOLE
     Dosage: UNK
     Route: 065
  355. PREVACID [Suspect]
     Active Substance: LANSOPRAZOLE
     Dosage: UNK
     Route: 048
  356. PREVACID [Suspect]
     Active Substance: LANSOPRAZOLE
     Dosage: UNK
     Route: 048
  357. PREVACID [Suspect]
     Active Substance: LANSOPRAZOLE
     Dosage: DOSAGE FORM : NOT SPECIFIED
     Route: 048
  358. PREVACID [Suspect]
     Active Substance: LANSOPRAZOLE
     Dosage: UNK
     Route: 048
  359. PREVACID [Suspect]
     Active Substance: LANSOPRAZOLE
     Dosage: UNK
     Route: 048
  360. PREVACID [Suspect]
     Active Substance: LANSOPRAZOLE
     Dosage: UNK, Q24H (1 EVERY 24 HOURS)
     Route: 048
  361. PREVACID [Suspect]
     Active Substance: LANSOPRAZOLE
     Dosage: UNK Q24H (1 EVERY 24 HOURS)
     Route: 065
  362. PULMICORT TURBUHALER [Suspect]
     Active Substance: BUDESONIDE
     Indication: Product used for unknown indication
     Dosage: UNK, DOSAGE FORM: NOT SPECIFIED
     Route: 065
  363. PULMICORT TURBUHALER [Suspect]
     Active Substance: BUDESONIDE
     Indication: Asthma
     Dosage: UNK
     Route: 065
  364. PULMICORT TURBUHALER [Suspect]
     Active Substance: BUDESONIDE
     Dosage: UNK, DOSAGE FORM: NOT SPECIFIED
     Route: 065
  365. PULMICORT TURBUHALER [Suspect]
     Active Substance: BUDESONIDE
     Dosage: UNK (DOSAGE FORM: NOT SPECIFIED)
     Route: 050
  366. PULMICORT TURBUHALER [Suspect]
     Active Substance: BUDESONIDE
     Dosage: UNK
  367. PULMICORT TURBUHALER [Suspect]
     Active Substance: BUDESONIDE
     Dosage: UNK, DOSAGE FORM: NOT SPECIFIED
  368. RISEDRONATE SODIUM [Suspect]
     Active Substance: RISEDRONATE SODIUM
     Indication: Product used for unknown indication
     Dosage: 5 MILLIGRAM
     Route: 048
  369. RISEDRONATE SODIUM [Suspect]
     Active Substance: RISEDRONATE SODIUM
     Dosage: 5 MILLIGRAM
     Route: 048
  370. RISEDRONATE SODIUM [Suspect]
     Active Substance: RISEDRONATE SODIUM
     Dosage: 5 MILLIGRAM
     Route: 048
  371. RISEDRONATE SODIUM [Suspect]
     Active Substance: RISEDRONATE SODIUM
     Dosage: 5 MILLIGRAM
     Route: 048
  372. RISEDRONATE SODIUM [Suspect]
     Active Substance: RISEDRONATE SODIUM
     Dosage: 5 MILLIGRAM  (DOSAGE FORM  NOT SPECIFIED)
     Route: 048
  373. RISEDRONATE SODIUM [Suspect]
     Active Substance: RISEDRONATE SODIUM
     Dosage: UNK (DOSAGE FORM NOT SPECIFIED)
     Route: 065
  374. RISEDRONATE SODIUM [Suspect]
     Active Substance: RISEDRONATE SODIUM
     Dosage: UNK; DOSAGE FORM NOT SPECIFIED
     Route: 065
  375. RISEDRONATE SODIUM [Suspect]
     Active Substance: RISEDRONATE SODIUM
     Dosage: 5 MILLIGRAM
     Route: 065
  376. RISEDRONATE SODIUM [Suspect]
     Active Substance: RISEDRONATE SODIUM
     Dosage: UNK
     Route: 048
  377. RISEDRONATE SODIUM [Suspect]
     Active Substance: RISEDRONATE SODIUM
     Dosage: UNK,DOSAGE FORM NOT SPECIFIED
     Route: 048
  378. RISEDRONATE SODIUM [Suspect]
     Active Substance: RISEDRONATE SODIUM
     Dosage: 5 MILLIGRAM
     Route: 065
  379. RISEDRONATE SODIUM [Suspect]
     Active Substance: RISEDRONATE SODIUM
     Dosage: 5 MILLIGRAM , DOSAGE FORM  NOT SPECIFIED
     Route: 065
  380. RISEDRONATE SODIUM [Suspect]
     Active Substance: RISEDRONATE SODIUM
     Dosage: UNK
     Route: 065
  381. RISEDRONATE SODIUM [Suspect]
     Active Substance: RISEDRONATE SODIUM
     Dosage: UNK
     Route: 065
  382. RISEDRONATE SODIUM [Suspect]
     Active Substance: RISEDRONATE SODIUM
     Dosage: 5 MILLIGRAM
     Route: 048
  383. RISEDRONATE SODIUM [Suspect]
     Active Substance: RISEDRONATE SODIUM
     Dosage: UNK
     Route: 065
  384. RISEDRONATE SODIUM [Suspect]
     Active Substance: RISEDRONATE SODIUM
     Dosage: UNK,DOSAGE FORM NOT SPECIFIED
     Route: 048
  385. RISEDRONATE SODIUM [Suspect]
     Active Substance: RISEDRONATE SODIUM
     Dosage: 5 MILLIGRAM
     Route: 048
  386. RISEDRONATE SODIUM [Suspect]
     Active Substance: RISEDRONATE SODIUM
     Dosage: UNK
     Route: 065
  387. RISEDRONATE SODIUM [Suspect]
     Active Substance: RISEDRONATE SODIUM
     Dosage: 5 MILLIGRAM
     Route: 048
  388. RISEDRONATE SODIUM [Suspect]
     Active Substance: RISEDRONATE SODIUM
     Dosage: UNK
     Route: 065
  389. RISEDRONATE SODIUM [Suspect]
     Active Substance: RISEDRONATE SODIUM
     Dosage: UNK
     Route: 048
  390. RISEDRONATE SODIUM [Suspect]
     Active Substance: RISEDRONATE SODIUM
     Dosage: UNK
     Route: 065
  391. RISEDRONATE SODIUM [Suspect]
     Active Substance: RISEDRONATE SODIUM
     Dosage: UNK, DOSAGE FORM  NOT SPECIFIED
     Route: 048
  392. RISEDRONATE SODIUM [Suspect]
     Active Substance: RISEDRONATE SODIUM
     Dosage: UNK
     Route: 065
  393. RISEDRONATE SODIUM [Suspect]
     Active Substance: RISEDRONATE SODIUM
     Dosage: 5 MILLIGRAM
     Route: 048
  394. RISEDRONATE SODIUM [Suspect]
     Active Substance: RISEDRONATE SODIUM
     Dosage: UNK
     Route: 048
  395. RISEDRONATE SODIUM [Suspect]
     Active Substance: RISEDRONATE SODIUM
     Dosage: 5 MILLIGRAM
     Route: 048
  396. RISEDRONIC ACID [Suspect]
     Active Substance: RISEDRONIC ACID
     Indication: Product used for unknown indication
     Dosage: 5 MILLIGRAM
     Route: 048
  397. RISEDRONIC ACID [Suspect]
     Active Substance: RISEDRONIC ACID
     Dosage: 5 MILLIGRAM
     Route: 048
  398. RISEDRONIC ACID [Suspect]
     Active Substance: RISEDRONIC ACID
     Dosage: 5 MILLIGRAM
     Route: 048
  399. RISEDRONIC ACID [Suspect]
     Active Substance: RISEDRONIC ACID
     Dosage: 5 MILLIGRAM
     Route: 048
  400. RISEDRONIC ACID [Suspect]
     Active Substance: RISEDRONIC ACID
     Dosage: UNK
     Route: 065
  401. ROSUVASTATIN CALCIUM [Suspect]
     Active Substance: ROSUVASTATIN CALCIUM
     Indication: Product used for unknown indication
     Dosage: UNK
     Route: 048
  402. ROSUVASTATIN CALCIUM [Suspect]
     Active Substance: ROSUVASTATIN CALCIUM
     Dosage: UNK
     Route: 065
  403. ROSUVASTATIN CALCIUM [Suspect]
     Active Substance: ROSUVASTATIN CALCIUM
     Dosage: UNK
     Route: 065
  404. ROSUVASTATIN CALCIUM [Suspect]
     Active Substance: ROSUVASTATIN CALCIUM
     Dosage: UNK
     Route: 048
  405. ROSUVASTATIN CALCIUM [Suspect]
     Active Substance: ROSUVASTATIN CALCIUM
     Dosage: UNK
     Route: 048
  406. ROSUVASTATIN CALCIUM [Suspect]
     Active Substance: ROSUVASTATIN CALCIUM
     Dosage: UNK
     Route: 065
  407. ROSUVASTATIN CALCIUM [Suspect]
     Active Substance: ROSUVASTATIN CALCIUM
     Dosage: UNK
     Route: 048
  408. ROSUVASTATIN CALCIUM [Suspect]
     Active Substance: ROSUVASTATIN CALCIUM
     Dosage: UNK
     Route: 048
  409. ROSUVASTATIN CALCIUM [Suspect]
     Active Substance: ROSUVASTATIN CALCIUM
     Dosage: UNK
     Route: 065
  410. ROSUVASTATIN CALCIUM [Suspect]
     Active Substance: ROSUVASTATIN CALCIUM
     Dosage: UNK
     Route: 065
  411. ROSUVASTATIN CALCIUM [Suspect]
     Active Substance: ROSUVASTATIN CALCIUM
     Dosage: UNK
     Route: 065
  412. ROSUVASTATIN CALCIUM [Suspect]
     Active Substance: ROSUVASTATIN CALCIUM
     Dosage: UNK
     Route: 048
  413. ROSUVASTATIN CALCIUM [Suspect]
     Active Substance: ROSUVASTATIN CALCIUM
     Dosage: UNK
     Route: 048
  414. ROSUVASTATIN CALCIUM [Suspect]
     Active Substance: ROSUVASTATIN CALCIUM
     Dosage: UNK
     Route: 065
  415. ROSUVASTATIN CALCIUM [Suspect]
     Active Substance: ROSUVASTATIN CALCIUM
     Dosage: UNK
     Route: 048
  416. ROSUVASTATIN CALCIUM [Suspect]
     Active Substance: ROSUVASTATIN CALCIUM
     Dosage: UNK
     Route: 065
  417. ROSUVASTATIN CALCIUM [Suspect]
     Active Substance: ROSUVASTATIN CALCIUM
     Dosage: UNK
     Route: 048
  418. ROSUVASTATIN CALCIUM [Suspect]
     Active Substance: ROSUVASTATIN CALCIUM
     Dosage: UNK
     Route: 065
  419. ROSUVASTATIN CALCIUM [Suspect]
     Active Substance: ROSUVASTATIN CALCIUM
     Dosage: UNK
     Route: 065
  420. ALBUTEROL SULFATE [Suspect]
     Active Substance: ALBUTEROL SULFATE
     Indication: Product used for unknown indication
     Dosage: UNK, DOSAGE FORM NOT SPECIFIED
     Route: 065
  421. ALBUTEROL SULFATE [Suspect]
     Active Substance: ALBUTEROL SULFATE
     Indication: Asthma
     Dosage: UNK, DOSAGE FORM NOT SPECIFIED
     Route: 065
  422. ALBUTEROL SULFATE [Suspect]
     Active Substance: ALBUTEROL SULFATE
     Dosage: UNK, DOSAGE FORM NOT SPECIFIED
     Route: 065
  423. ALBUTEROL SULFATE [Suspect]
     Active Substance: ALBUTEROL SULFATE
     Dosage: UNK, DOSAGE FORM NOT SPECIFIED
     Route: 065
  424. ALBUTEROL SULFATE [Suspect]
     Active Substance: ALBUTEROL SULFATE
     Dosage: UNK, DOSAGE FORM NOT SPECIFIED
     Route: 065
  425. ALBUTEROL SULFATE [Suspect]
     Active Substance: ALBUTEROL SULFATE
     Dosage: UNK, DOSAGE FORM NOT SPECIFIED
     Route: 065
  426. ALBUTEROL SULFATE [Suspect]
     Active Substance: ALBUTEROL SULFATE
     Dosage: UNK, DOSAGE FORM NOT SPECIFIED
     Route: 065
  427. ALBUTEROL SULFATE [Suspect]
     Active Substance: ALBUTEROL SULFATE
     Dosage: UNK, DOSAGE FORM NOT SPECIFIED
     Route: 065
  428. ALBUTEROL SULFATE [Suspect]
     Active Substance: ALBUTEROL SULFATE
     Dosage: UNK, DOSAGE FORM NOT SPECIFIED
     Route: 065
  429. ALBUTEROL SULFATE [Suspect]
     Active Substance: ALBUTEROL SULFATE
     Dosage: UNK, DOSAGE FORM NOT SPECIFIED
     Route: 065
  430. ALBUTEROL SULFATE [Suspect]
     Active Substance: ALBUTEROL SULFATE
     Dosage: UNK, DOSAGE FORM NOT SPECIFIED
     Route: 065
  431. ALBUTEROL SULFATE [Suspect]
     Active Substance: ALBUTEROL SULFATE
     Dosage: UNK, DOSAGE FORM NOT SPECIFIED
     Route: 065
  432. ALBUTEROL SULFATE [Suspect]
     Active Substance: ALBUTEROL SULFATE
     Dosage: UNK, DOSAGE FORM NOT SPECIFIED
     Route: 065
  433. ALBUTEROL SULFATE [Suspect]
     Active Substance: ALBUTEROL SULFATE
     Dosage: UNK, DOSAGE FORM NOT SPECIFIED
     Route: 065
  434. ALBUTEROL SULFATE [Suspect]
     Active Substance: ALBUTEROL SULFATE
     Dosage: UNK, DOSAGE FORM NOT SPECIFIED
     Route: 065
  435. ALBUTEROL SULFATE [Suspect]
     Active Substance: ALBUTEROL SULFATE
     Dosage: UNK, DOSAGE FORM NOT SPECIFIED
     Route: 065
  436. ALBUTEROL SULFATE [Suspect]
     Active Substance: ALBUTEROL SULFATE
     Dosage: UNK
     Route: 065
  437. ALBUTEROL SULFATE [Suspect]
     Active Substance: ALBUTEROL SULFATE
     Dosage: UNK
     Route: 065
  438. ALBUTEROL SULFATE [Suspect]
     Active Substance: ALBUTEROL SULFATE
     Dosage: UNK
     Route: 065
  439. VENLAFAXINE HYDROCHLORIDE [Suspect]
     Active Substance: VENLAFAXINE HYDROCHLORIDE
     Indication: Product used for unknown indication
     Dosage: UNK
     Route: 065
  440. VENLAFAXINE HYDROCHLORIDE [Suspect]
     Active Substance: VENLAFAXINE HYDROCHLORIDE
     Dosage: UNK
     Route: 065
  441. VENLAFAXINE HYDROCHLORIDE [Suspect]
     Active Substance: VENLAFAXINE HYDROCHLORIDE
     Dosage: UNK
     Route: 065
  442. VENLAFAXINE HYDROCHLORIDE [Suspect]
     Active Substance: VENLAFAXINE HYDROCHLORIDE
     Dosage: UNK
     Route: 065
  443. VENLAFAXINE HYDROCHLORIDE [Suspect]
     Active Substance: VENLAFAXINE HYDROCHLORIDE
     Dosage: UNK
     Route: 065
  444. VENLAFAXINE HYDROCHLORIDE [Suspect]
     Active Substance: VENLAFAXINE HYDROCHLORIDE
     Dosage: UNK
     Route: 065
  445. ATORVASTATIN CALCIUM\GLIMEPIRIDE\METFORMIN HYDROCHLORIDE\RAMIPRIL [Suspect]
     Active Substance: ATORVASTATIN CALCIUM\GLIMEPIRIDE\METFORMIN HYDROCHLORIDE\RAMIPRIL
     Indication: Product used for unknown indication
     Dosage: UNK
     Route: 065
  446. ATORVASTATIN CALCIUM\GLIMEPIRIDE\METFORMIN HYDROCHLORIDE\RAMIPRIL [Suspect]
     Active Substance: ATORVASTATIN CALCIUM\GLIMEPIRIDE\METFORMIN HYDROCHLORIDE\RAMIPRIL
     Dosage: UNK
     Route: 065
  447. ATORVASTATIN CALCIUM\GLIMEPIRIDE\METFORMIN HYDROCHLORIDE\RAMIPRIL [Suspect]
     Active Substance: ATORVASTATIN CALCIUM\GLIMEPIRIDE\METFORMIN HYDROCHLORIDE\RAMIPRIL
     Dosage: UNK
     Route: 065
  448. ATORVASTATIN CALCIUM\GLIMEPIRIDE\METFORMIN HYDROCHLORIDE\RAMIPRIL [Suspect]
     Active Substance: ATORVASTATIN CALCIUM\GLIMEPIRIDE\METFORMIN HYDROCHLORIDE\RAMIPRIL
     Dosage: UNK
     Route: 065
  449. ROPINIROLE HYDROCHLORIDE [Suspect]
     Active Substance: ROPINIROLE HYDROCHLORIDE
     Indication: Product used for unknown indication
     Dosage: UNK
     Route: 065
  450. ROPINIROLE HYDROCHLORIDE [Suspect]
     Active Substance: ROPINIROLE HYDROCHLORIDE
     Dosage: UNK
     Route: 048
  451. ROPINIROLE HYDROCHLORIDE [Suspect]
     Active Substance: ROPINIROLE HYDROCHLORIDE
     Dosage: UNK
     Route: 048
  452. ROPINIROLE HYDROCHLORIDE [Suspect]
     Active Substance: ROPINIROLE HYDROCHLORIDE
     Dosage: UNK
     Route: 065
  453. ROPINIROLE HYDROCHLORIDE [Suspect]
     Active Substance: ROPINIROLE HYDROCHLORIDE
     Dosage: UNK
     Route: 065
  454. SYNTHROID [Suspect]
     Active Substance: LEVOTHYROXINE SODIUM
     Indication: Product used for unknown indication
     Dosage: UNK, DOSAGE FORM NOT SPECIFIED
     Route: 065
  455. SYNTHROID [Suspect]
     Active Substance: LEVOTHYROXINE SODIUM
     Dosage: UNK, DOSAGE FORM NOT SPECIFIED
     Route: 065
  456. SYNTHROID [Suspect]
     Active Substance: LEVOTHYROXINE SODIUM
     Dosage: UNK, DOSAGE FORM NOT SPECIFIED
     Route: 065
  457. SYNTHROID [Suspect]
     Active Substance: LEVOTHYROXINE SODIUM
     Dosage: UNK, DOSAGE FORM NOT SPECIFIED
     Route: 065
  458. SYNTHROID [Suspect]
     Active Substance: LEVOTHYROXINE SODIUM
     Dosage: UNK, DOSAGE FORM NOT SPECIFIED
     Route: 065
  459. SYNTHROID [Suspect]
     Active Substance: LEVOTHYROXINE SODIUM
     Dosage: UNK, DOSAGE FORM NOT SPECIFIED
     Route: 065
  460. SYNTHROID [Suspect]
     Active Substance: LEVOTHYROXINE SODIUM
     Dosage: UNK, DOSAGE FORM NOT SPECIFIED
     Route: 065
  461. SYNTHROID [Suspect]
     Active Substance: LEVOTHYROXINE SODIUM
     Dosage: UNK, DOSAGE FORM NOT SPECIFIED
     Route: 065
  462. SYNTHROID [Suspect]
     Active Substance: LEVOTHYROXINE SODIUM
     Dosage: UNK, DOSAGE FORM NOT SPECIFIED
     Route: 065
  463. SYNTHROID [Suspect]
     Active Substance: LEVOTHYROXINE SODIUM
     Dosage: UNK, DOSAGE FORM NOT SPECIFIED
     Route: 065
  464. SYNTHROID [Suspect]
     Active Substance: LEVOTHYROXINE SODIUM
     Dosage: UNK, DOSAGE FORM NOT SPECIFIED
     Route: 065
  465. SYNTHROID [Suspect]
     Active Substance: LEVOTHYROXINE SODIUM
     Dosage: UNK, DOSAGE FORM NOT SPECIFIED
     Route: 065
  466. VENTOLIN [Suspect]
     Active Substance: ALBUTEROL SULFATE
     Indication: Asthma
     Dosage: DOSAGE FORM: NOT SPECIFIED
     Route: 048
  467. VENTOLIN [Suspect]
     Active Substance: ALBUTEROL SULFATE
     Indication: Product used for unknown indication
     Dosage: DOSAGE FORM : NOT SPECIFIED
     Route: 048
  468. VENTOLIN [Suspect]
     Active Substance: ALBUTEROL SULFATE
     Dosage: DOSAGE FORM : NOT SPECIFIED
     Route: 065
  469. LANSOPRAZOLE [Suspect]
     Active Substance: LANSOPRAZOLE
     Indication: Product used for unknown indication
     Dosage: UNK
     Route: 065
  470. LANSOPRAZOLE [Suspect]
     Active Substance: LANSOPRAZOLE
     Dosage: UNK
     Route: 048
  471. LANSOPRAZOLE [Suspect]
     Active Substance: LANSOPRAZOLE
     Dosage: UNK
     Route: 065
  472. LANSOPRAZOLE [Suspect]
     Active Substance: LANSOPRAZOLE
     Dosage: UNK
     Route: 048
  473. LANSOPRAZOLE [Suspect]
     Active Substance: LANSOPRAZOLE
     Dosage: UNK
     Route: 065
  474. LANSOPRAZOLE [Suspect]
     Active Substance: LANSOPRAZOLE
     Dosage: UNK
     Route: 048
  475. LANSOPRAZOLE [Suspect]
     Active Substance: LANSOPRAZOLE
     Dosage: UNK
     Route: 048
  476. LANSOPRAZOLE [Suspect]
     Active Substance: LANSOPRAZOLE
     Dosage: UNK
     Route: 048
  477. LANSOPRAZOLE [Suspect]
     Active Substance: LANSOPRAZOLE
     Dosage: UNK
     Route: 048
  478. LANSOPRAZOLE [Suspect]
     Active Substance: LANSOPRAZOLE
     Dosage: UNK
     Route: 048
  479. LANSOPRAZOLE [Suspect]
     Active Substance: LANSOPRAZOLE
     Dosage: UNK
     Route: 048
  480. LANSOPRAZOLE [Suspect]
     Active Substance: LANSOPRAZOLE
     Dosage: UNK
     Route: 048
  481. LANSOPRAZOLE [Suspect]
     Active Substance: LANSOPRAZOLE
     Dosage: UNK
     Route: 048
  482. LANSOPRAZOLE [Suspect]
     Active Substance: LANSOPRAZOLE
     Dosage: UNK
     Route: 065
  483. LANSOPRAZOLE [Suspect]
     Active Substance: LANSOPRAZOLE
     Dosage: UNK
     Route: 065
  484. LANSOPRAZOLE [Suspect]
     Active Substance: LANSOPRAZOLE
     Dosage: UNK
     Route: 065
  485. LANSOPRAZOLE [Suspect]
     Active Substance: LANSOPRAZOLE
     Dosage: UNK
     Route: 065
  486. LANSOPRAZOLE [Suspect]
     Active Substance: LANSOPRAZOLE
     Dosage: UNK
     Route: 065
  487. LANSOPRAZOLE [Suspect]
     Active Substance: LANSOPRAZOLE
     Dosage: UNK
     Route: 065
  488. LANSOPRAZOLE [Suspect]
     Active Substance: LANSOPRAZOLE
     Dosage: UNK
     Route: 065
  489. LANSOPRAZOLE [Suspect]
     Active Substance: LANSOPRAZOLE
     Dosage: UNK
     Route: 065
  490. LANSOPRAZOLE [Suspect]
     Active Substance: LANSOPRAZOLE
     Indication: Product used for unknown indication
     Dosage: UNK
     Route: 065
  491. LANSOPRAZOLE [Suspect]
     Active Substance: LANSOPRAZOLE
     Dosage: UNK
     Route: 065
  492. PREVACID [Suspect]
     Active Substance: LANSOPRAZOLE
     Indication: Product used for unknown indication
     Dosage: UNK
     Route: 065
  493. PREVACID [Suspect]
     Active Substance: LANSOPRAZOLE
     Dosage: UNK
     Route: 048
  494. RISEDRONIC ACID [Suspect]
     Active Substance: RISEDRONIC ACID
     Indication: Product used for unknown indication
     Dosage: UNK
     Route: 065
  495. ALBUTEROL [Suspect]
     Active Substance: ALBUTEROL
     Indication: Product used for unknown indication
     Dosage: UNK, DOSAGE FORM AEROSOL METERED DOSE
     Route: 065
  496. ALBUTEROL [Suspect]
     Active Substance: ALBUTEROL
     Indication: Asthma
     Dosage: UNK,DOSAGE FORM NOT SPECIFIED
     Route: 065
  497. ALBUTEROL [Suspect]
     Active Substance: ALBUTEROL
     Dosage: UNK,DOSAGE FORM NOT SPECIFIED
     Route: 065
  498. ALBUTEROL [Suspect]
     Active Substance: ALBUTEROL
     Dosage: UNK,DOSAGE FORM NOT SPECIFIED
     Route: 065
  499. ALBUTEROL [Suspect]
     Active Substance: ALBUTEROL
     Dosage: UNK,DOSAGE FORM NOT SPECIFIED
     Route: 065
  500. ROPINIROLE HYDROCHLORIDE [Suspect]
     Active Substance: ROPINIROLE HYDROCHLORIDE
     Indication: Product used for unknown indication
     Dosage: UNK
     Route: 065
  501. ROPINIROLE HYDROCHLORIDE [Suspect]
     Active Substance: ROPINIROLE HYDROCHLORIDE
     Dosage: 0.25 MILLIGRAM
     Route: 065
  502. ROPINIROLE HYDROCHLORIDE [Suspect]
     Active Substance: ROPINIROLE HYDROCHLORIDE
     Dosage: UNK
     Route: 065
  503. ROPINIROLE HYDROCHLORIDE [Suspect]
     Active Substance: ROPINIROLE HYDROCHLORIDE
     Dosage: UNK
     Route: 048
  504. ROPINIROLE HYDROCHLORIDE [Suspect]
     Active Substance: ROPINIROLE HYDROCHLORIDE
     Dosage: UNK
     Route: 048
  505. ROPINIROLE HYDROCHLORIDE [Suspect]
     Active Substance: ROPINIROLE HYDROCHLORIDE
     Dosage: UNK
     Route: 065
  506. ROPINIROLE HYDROCHLORIDE [Suspect]
     Active Substance: ROPINIROLE HYDROCHLORIDE
     Dosage: UNK
     Route: 065
  507. ROPINIROLE HYDROCHLORIDE [Suspect]
     Active Substance: ROPINIROLE HYDROCHLORIDE
     Dosage: UNK
     Route: 065
  508. ROPINIROLE HYDROCHLORIDE [Suspect]
     Active Substance: ROPINIROLE HYDROCHLORIDE
     Dosage: UNK
     Route: 065
  509. ROPINIROLE HYDROCHLORIDE [Suspect]
     Active Substance: ROPINIROLE HYDROCHLORIDE
     Dosage: UNK
     Route: 048
  510. ROPINIROLE HYDROCHLORIDE [Suspect]
     Active Substance: ROPINIROLE HYDROCHLORIDE
     Dosage: UNK
     Route: 065
  511. ROPINIROLE HYDROCHLORIDE [Suspect]
     Active Substance: ROPINIROLE HYDROCHLORIDE
     Dosage: 0.25 MILLIGRAM
     Route: 065
  512. ROPINIROLE HYDROCHLORIDE [Suspect]
     Active Substance: ROPINIROLE HYDROCHLORIDE
     Dosage: 0.25 MILLIGRAM
     Route: 065
  513. PREVACID [Suspect]
     Active Substance: LANSOPRAZOLE
     Dosage: UNK
     Route: 065
  514. SYMBICORT [Suspect]
     Active Substance: BUDESONIDE\FORMOTEROL FUMARATE DIHYDRATE
     Indication: Product used for unknown indication
     Dosage: UNK; DOSAGE FORM: POWDER
     Route: 065
  515. SYMBICORT [Suspect]
     Active Substance: BUDESONIDE\FORMOTEROL FUMARATE DIHYDRATE
     Dosage: DOSAGE FORM: POWDER
     Route: 065
  516. SYMBICORT [Suspect]
     Active Substance: BUDESONIDE\FORMOTEROL FUMARATE DIHYDRATE
     Dosage: DOSAGE FORM: POWDER
     Route: 065
  517. SYMBICORT [Suspect]
     Active Substance: BUDESONIDE\FORMOTEROL FUMARATE DIHYDRATE
     Dosage: UNK
  518. IRON DEXTRAN [Suspect]
     Active Substance: IRON DEXTRAN
     Indication: Product used for unknown indication
     Dosage: UNK
     Route: 065
  519. IRON DEXTRAN [Suspect]
     Active Substance: IRON DEXTRAN
     Dosage: UNK
     Route: 065
  520. IRON DEXTRAN [Suspect]
     Active Substance: IRON DEXTRAN
     Dosage: UNK
     Route: 065
  521. ROSUVASTATIN CALCIUM [Suspect]
     Active Substance: ROSUVASTATIN CALCIUM
     Indication: Product used for unknown indication
     Dosage: DOSAGE FORM: NOT SPECIFIED
     Route: 065
  522. ROSUVASTATIN CALCIUM [Suspect]
     Active Substance: ROSUVASTATIN CALCIUM
     Dosage: UNK
     Route: 065
  523. ROSUVASTATIN CALCIUM [Suspect]
     Active Substance: ROSUVASTATIN CALCIUM
     Dosage: UNK
     Route: 065
  524. ROSUVASTATIN CALCIUM [Suspect]
     Active Substance: ROSUVASTATIN CALCIUM
     Dosage: UNK
     Route: 065
  525. ROSUVASTATIN CALCIUM [Suspect]
     Active Substance: ROSUVASTATIN CALCIUM
     Dosage: UNK
     Route: 065
  526. ROSUVASTATIN CALCIUM [Suspect]
     Active Substance: ROSUVASTATIN CALCIUM
     Dosage: UNK
     Route: 065
  527. ROSUVASTATIN CALCIUM [Suspect]
     Active Substance: ROSUVASTATIN CALCIUM
     Dosage: UNK
     Route: 048
  528. ROSUVASTATIN CALCIUM [Suspect]
     Active Substance: ROSUVASTATIN CALCIUM
     Dosage: UNK
     Route: 048
  529. ROSUVASTATIN CALCIUM [Suspect]
     Active Substance: ROSUVASTATIN CALCIUM
     Dosage: UNK
     Route: 048
  530. CANAGLIFLOZIN\METFORMIN HYDROCHLORIDE [Suspect]
     Active Substance: CANAGLIFLOZIN\METFORMIN HYDROCHLORIDE
     Indication: Product used for unknown indication
     Dosage: UNK
     Route: 048
  531. CANAGLIFLOZIN\METFORMIN HYDROCHLORIDE [Suspect]
     Active Substance: CANAGLIFLOZIN\METFORMIN HYDROCHLORIDE
     Dosage: UNK
     Route: 048
  532. CANAGLIFLOZIN\METFORMIN HYDROCHLORIDE [Suspect]
     Active Substance: CANAGLIFLOZIN\METFORMIN HYDROCHLORIDE
     Dosage: UNK
     Route: 048
  533. CANAGLIFLOZIN\METFORMIN HYDROCHLORIDE [Suspect]
     Active Substance: CANAGLIFLOZIN\METFORMIN HYDROCHLORIDE
     Dosage: UNK
     Route: 048
  534. CANAGLIFLOZIN\METFORMIN HYDROCHLORIDE [Suspect]
     Active Substance: CANAGLIFLOZIN\METFORMIN HYDROCHLORIDE
     Dosage: UNK
     Route: 048
  535. CANAGLIFLOZIN\METFORMIN HYDROCHLORIDE [Suspect]
     Active Substance: CANAGLIFLOZIN\METFORMIN HYDROCHLORIDE
     Dosage: UNK
     Route: 048
  536. CANAGLIFLOZIN\METFORMIN HYDROCHLORIDE [Suspect]
     Active Substance: CANAGLIFLOZIN\METFORMIN HYDROCHLORIDE
     Dosage: UNK
     Route: 048
  537. CANAGLIFLOZIN\METFORMIN HYDROCHLORIDE [Suspect]
     Active Substance: CANAGLIFLOZIN\METFORMIN HYDROCHLORIDE
     Dosage: UNK
     Route: 048
  538. CANAGLIFLOZIN\METFORMIN HYDROCHLORIDE [Suspect]
     Active Substance: CANAGLIFLOZIN\METFORMIN HYDROCHLORIDE
     Dosage: UNK
     Route: 048
  539. CANAGLIFLOZIN\METFORMIN HYDROCHLORIDE [Suspect]
     Active Substance: CANAGLIFLOZIN\METFORMIN HYDROCHLORIDE
     Dosage: UNK
     Route: 048
  540. CANAGLIFLOZIN\METFORMIN HYDROCHLORIDE [Suspect]
     Active Substance: CANAGLIFLOZIN\METFORMIN HYDROCHLORIDE
     Dosage: UNK
     Route: 065
  541. CANAGLIFLOZIN\METFORMIN HYDROCHLORIDE [Suspect]
     Active Substance: CANAGLIFLOZIN\METFORMIN HYDROCHLORIDE
     Dosage: UNK
     Route: 065
  542. CANAGLIFLOZIN\METFORMIN HYDROCHLORIDE [Suspect]
     Active Substance: CANAGLIFLOZIN\METFORMIN HYDROCHLORIDE
     Dosage: UNK
     Route: 065
  543. OMALIZUMAB [Suspect]
     Active Substance: OMALIZUMAB
     Indication: Product used for unknown indication
     Dosage: UNK
     Route: 065
  544. OMALIZUMAB [Suspect]
     Active Substance: OMALIZUMAB
     Dosage: UNK
     Route: 065
  545. OMALIZUMAB [Suspect]
     Active Substance: OMALIZUMAB
     Dosage: UNK
     Route: 065
  546. OMALIZUMAB [Suspect]
     Active Substance: OMALIZUMAB
     Dosage: UNK,DOSAGE FORM NOT SPECIFIED
     Route: 065
  547. OMALIZUMAB [Suspect]
     Active Substance: OMALIZUMAB
     Dosage: UNK,DOSAGE FORM NOT SPECIFIED
     Route: 065
  548. OMALIZUMAB [Suspect]
     Active Substance: OMALIZUMAB
     Dosage: UNK,DOSAEG FORM NOT SPECIFIED
     Route: 065
  549. OMALIZUMAB [Suspect]
     Active Substance: OMALIZUMAB
     Dosage: UNK, DOSAGE FORM  NOT SPECIFIED
     Route: 065
  550. SITAGLIPTIN PHOSPHATE [Suspect]
     Active Substance: SITAGLIPTIN PHOSPHATE
     Indication: Product used for unknown indication
     Dosage: UNK
     Route: 065
  551. SITAGLIPTIN PHOSPHATE [Suspect]
     Active Substance: SITAGLIPTIN PHOSPHATE
     Dosage: UNK
     Route: 065
  552. SITAGLIPTIN PHOSPHATE [Suspect]
     Active Substance: SITAGLIPTIN PHOSPHATE
     Dosage: UNK
     Route: 048
  553. SITAGLIPTIN PHOSPHATE [Suspect]
     Active Substance: SITAGLIPTIN PHOSPHATE
     Dosage: UNK
     Route: 048
  554. SITAGLIPTIN PHOSPHATE [Suspect]
     Active Substance: SITAGLIPTIN PHOSPHATE
     Dosage: UNK
     Route: 065
  555. SITAGLIPTIN PHOSPHATE [Suspect]
     Active Substance: SITAGLIPTIN PHOSPHATE
     Dosage: UNK
     Route: 065
  556. SITAGLIPTIN PHOSPHATE [Suspect]
     Active Substance: SITAGLIPTIN PHOSPHATE
     Dosage: UNK
     Route: 048
  557. SITAGLIPTIN PHOSPHATE [Suspect]
     Active Substance: SITAGLIPTIN PHOSPHATE
     Dosage: UNK
     Route: 065
  558. SITAGLIPTIN PHOSPHATE [Suspect]
     Active Substance: SITAGLIPTIN PHOSPHATE
     Dosage: UNK
     Route: 065
  559. SITAGLIPTIN PHOSPHATE [Suspect]
     Active Substance: SITAGLIPTIN PHOSPHATE
     Dosage: UNK
     Route: 048
  560. SITAGLIPTIN PHOSPHATE [Suspect]
     Active Substance: SITAGLIPTIN PHOSPHATE
     Dosage: UNK
     Route: 048
  561. SITAGLIPTIN PHOSPHATE [Suspect]
     Active Substance: SITAGLIPTIN PHOSPHATE
     Dosage: UNK
     Route: 065
  562. SITAGLIPTIN PHOSPHATE [Suspect]
     Active Substance: SITAGLIPTIN PHOSPHATE
     Dosage: UNK
     Route: 065
  563. SITAGLIPTIN PHOSPHATE [Suspect]
     Active Substance: SITAGLIPTIN PHOSPHATE
     Dosage: UNK
     Route: 065
  564. SITAGLIPTIN PHOSPHATE [Suspect]
     Active Substance: SITAGLIPTIN PHOSPHATE
     Dosage: UNK
     Route: 048
  565. METFORMIN HYDROCHLORIDE [Suspect]
     Active Substance: METFORMIN HYDROCHLORIDE
     Indication: Product used for unknown indication
     Dosage: UNK
     Route: 065
  566. METFORMIN HYDROCHLORIDE\SITAGLIPTIN PHOSPHATE [Suspect]
     Active Substance: METFORMIN HYDROCHLORIDE\SITAGLIPTIN PHOSPHATE
     Indication: Product used for unknown indication
     Dosage: UNK
     Route: 048
  567. METFORMIN HYDROCHLORIDE\SITAGLIPTIN PHOSPHATE [Suspect]
     Active Substance: METFORMIN HYDROCHLORIDE\SITAGLIPTIN PHOSPHATE
     Dosage: UNK
     Route: 065
  568. FERROUS FUMARATE [Suspect]
     Active Substance: FERROUS FUMARATE
     Indication: Product used for unknown indication
     Dosage: UNK
     Route: 065
  569. INVOKAMET [Suspect]
     Active Substance: CANAGLIFLOZIN\METFORMIN HYDROCHLORIDE
     Indication: Product used for unknown indication
     Dosage: UNK
     Route: 065
  570. ACTONEL [Suspect]
     Active Substance: RISEDRONATE SODIUM
     Indication: Product used for unknown indication
     Dosage: UNK
     Route: 065
  571. BUDESONIDE [Suspect]
     Active Substance: BUDESONIDE
     Indication: Product used for unknown indication
     Dosage: UNK
     Route: 065
  572. BUDESONIDE [Suspect]
     Active Substance: BUDESONIDE
     Dosage: UNK
     Route: 048
  573. BUDESONIDE [Suspect]
     Active Substance: BUDESONIDE
     Dosage: UNK
     Route: 065
  574. DILTIAZEM [Suspect]
     Active Substance: DILTIAZEM
     Indication: Product used for unknown indication
     Dosage: UNK
     Route: 065
  575. FORMOTEROL [Suspect]
     Active Substance: FORMOTEROL
     Indication: Product used for unknown indication
     Dosage: UNK
     Route: 065
  576. ROSUVASTATIN [Suspect]
     Active Substance: ROSUVASTATIN
     Indication: Product used for unknown indication
     Dosage: UNK
     Route: 065
  577. ROSUVASTATIN [Suspect]
     Active Substance: ROSUVASTATIN
     Dosage: UNK
     Route: 065
  578. SITAGLIPTIN [Suspect]
     Active Substance: SITAGLIPTIN
     Indication: Product used for unknown indication
     Dosage: UNK
     Route: 065
  579. SITAGLIPTIN [Suspect]
     Active Substance: SITAGLIPTIN
     Dosage: UNK
     Route: 048
  580. ALBUTEROL [Suspect]
     Active Substance: ALBUTEROL
     Indication: Product used for unknown indication
     Dosage: UNK
     Route: 065
  581. ROPINIROLE [Suspect]
     Active Substance: ROPINIROLE
     Indication: Product used for unknown indication
     Dosage: UNK
     Route: 065
  582. ROPINIROLE [Suspect]
     Active Substance: ROPINIROLE
     Dosage: UNK
     Route: 065
  583. ROPINIROLE [Suspect]
     Active Substance: ROPINIROLE
     Dosage: UNK
     Route: 065
  584. ROPINIROLE [Suspect]
     Active Substance: ROPINIROLE
     Dosage: UNK
     Route: 065
  585. IRON [Suspect]
     Active Substance: IRON
     Indication: Product used for unknown indication
     Route: 065

REACTIONS (5)
  - Asthma [Unknown]
  - Full blood count abnormal [Unknown]
  - Gastrooesophageal reflux disease [Unknown]
  - Hyperglycaemia [Unknown]
  - Type 2 diabetes mellitus [Unknown]
